FAERS Safety Report 21975665 (Version 20)
Quarter: 2025Q1

REPORT INFORMATION
  Report Type: Report from Study
  Country: MX (occurrence: MX)
  Receive Date: 20230210
  Receipt Date: 20250303
  Transmission Date: 20250409
  Serious: Yes (Life-Threatening)
  Sender: TAKEDA
  Company Number: MX-TAKEDA-2021TUS077428

PATIENT
  Age: 56 Year
  Sex: Female

DRUGS (16)
  1. ICATIBANT [Suspect]
     Active Substance: ICATIBANT ACETATE
     Indication: Hereditary angioedema
  2. ICATIBANT [Suspect]
     Active Substance: ICATIBANT ACETATE
  3. ICATIBANT [Suspect]
     Active Substance: ICATIBANT ACETATE
  4. ICATIBANT [Suspect]
     Active Substance: ICATIBANT ACETATE
  5. ICATIBANT [Suspect]
     Active Substance: ICATIBANT ACETATE
  6. ICATIBANT [Suspect]
     Active Substance: ICATIBANT ACETATE
  7. ICATIBANT [Suspect]
     Active Substance: ICATIBANT ACETATE
  8. ICATIBANT [Suspect]
     Active Substance: ICATIBANT ACETATE
     Dosage: 1 DOSAGE FORM, Q2WEEKS
  9. ICATIBANT [Suspect]
     Active Substance: ICATIBANT ACETATE
  10. RIVAROXABAN [Concomitant]
     Active Substance: RIVAROXABAN
     Indication: Anticoagulant therapy
     Dosage: 20 MILLIGRAM, QD
  11. ENOXAPARIN [Concomitant]
     Active Substance: ENOXAPARIN
     Indication: Vasculitis
  12. ENOXAPARIN [Concomitant]
     Active Substance: ENOXAPARIN
     Indication: Hereditary angioedema
  13. ENOXAPARIN [Concomitant]
     Active Substance: ENOXAPARIN
     Indication: Thrombosis
  14. LATANOPROST [Concomitant]
     Active Substance: LATANOPROST
     Indication: Glaucoma
  15. XARELTO [Concomitant]
     Active Substance: RIVAROXABAN
     Indication: Thrombosis
     Dosage: 20 MILLIGRAM, QD
  16. XARELTO [Concomitant]
     Active Substance: RIVAROXABAN
     Indication: Glaucoma

REACTIONS (27)
  - Pharyngeal oedema [Recovering/Resolving]
  - Application site pain [Recovered/Resolved]
  - Application site inflammation [Unknown]
  - Dizziness [Unknown]
  - Pharyngitis [Recovering/Resolving]
  - Back pain [Not Recovered/Not Resolved]
  - Discomfort [Unknown]
  - Snoring [Unknown]
  - Cough [Unknown]
  - Administration site rash [Unknown]
  - Abdominal pain [Unknown]
  - Pain [Not Recovered/Not Resolved]
  - Fatigue [Recovered/Resolved]
  - Depressed mood [Not Recovered/Not Resolved]
  - Mental disorder [Not Recovered/Not Resolved]
  - COVID-19 [Recovering/Resolving]
  - Malaise [Recovered/Resolved]
  - Respiratory disorder [Recovered/Resolved]
  - Abdominal discomfort [Unknown]
  - Respiratory tract infection [Unknown]
  - Throat irritation [Unknown]
  - Product availability issue [Recovering/Resolving]
  - Product use issue [Unknown]
  - Gastric infection [Unknown]
  - Urinary tract infection [Recovering/Resolving]
  - Renal pain [Not Recovered/Not Resolved]
  - Headache [Recovered/Resolved]

NARRATIVE: CASE EVENT DATE: 20211125
